FAERS Safety Report 4351208-5 (Version None)
Quarter: 2004Q2

REPORT INFORMATION
  Report Type: 
  Country: None (occurrence: None)
  Receive Date: 20040430
  Receipt Date: 20040430
  Transmission Date: 20050107
  Serious: Yes (Hospitalization)
  Sender: FDA-Public Use
  Company Number: None

PATIENT
  Age: 65 Year
  Sex: Female

DRUGS (3)
  1. THEOPHYLLINE [Suspect]
     Dosage: PO COPD
  2. ALLOPRINOL [Concomitant]
  3. ARICEPT [Concomitant]

REACTIONS (1)
  - MEDICATION ERROR [None]
